FAERS Safety Report 5427584-9 (Version None)
Quarter: 2007Q3

REPORT INFORMATION
  Report Type: 
  Country: None (occurrence: None)
  Receive Date: 20070828
  Receipt Date: 20070823
  Transmission Date: 20080115
  Serious: Yes (Life-Threatening)
  Sender: FDA-Public Use
  Company Number: B0484465A

PATIENT
  Age: 72 Year
  Sex: Male

DRUGS (1)
  1. FORTUM [Suspect]
     Indication: ASCITES
     Dosage: 4G PER DAY
     Route: 042
     Dates: start: 20070818, end: 20070818

REACTIONS (5)
  - ALTERED STATE OF CONSCIOUSNESS [None]
  - ANAPHYLACTIC REACTION [None]
  - BLOOD PRESSURE DECREASED [None]
  - CHILLS [None]
  - PYREXIA [None]
